FAERS Safety Report 24695616 (Version 1)
Quarter: 2024Q4

REPORT INFORMATION
  Report Type: Spontaneous
  Country: DE (occurrence: DE)
  Receive Date: 20241204
  Receipt Date: 20241204
  Transmission Date: 20250115
  Serious: Yes (Other)
  Sender: TEVA
  Company Number: DE-TEVA-VS-3270238

PATIENT
  Age: 35 Year
  Sex: Female

DRUGS (6)
  1. DIAZEPAM [Suspect]
     Active Substance: DIAZEPAM
     Indication: Drug abuse
     Route: 048
  2. LEVOMETHADONE [Suspect]
     Active Substance: LEVOMETHADONE
     Indication: Drug abuse
     Route: 048
  3. NORDAZEPAM [Suspect]
     Active Substance: NORDAZEPAM
     Indication: Drug abuse
     Route: 048
  4. TEMAZEPAM [Suspect]
     Active Substance: TEMAZEPAM
     Indication: Drug abuse
     Route: 048
  5. OXAZEPAM [Suspect]
     Active Substance: OXAZEPAM
     Indication: Drug abuse
     Route: 048
  6. AMPHETAMINE [Suspect]
     Active Substance: AMPHETAMINE
     Indication: Drug abuse
     Route: 048

REACTIONS (4)
  - Lethargy [Unknown]
  - Drug abuse [Unknown]
  - Aggression [Unknown]
  - Bradykinesia [Unknown]
